FAERS Safety Report 19255286 (Version 1)
Quarter: 2021Q2

REPORT INFORMATION
  Report Type: Spontaneous
  Country: US (occurrence: US)
  Receive Date: 20210513
  Receipt Date: 20210513
  Transmission Date: 20210717
  Serious: No
  Sender: FDA-Public Use
  Company Number: US-ACELRX PHARMACEUTICALS, INC-ACEL20210652

PATIENT
  Age: 70 Year
  Sex: Female

DRUGS (3)
  1. DSUVIA [Suspect]
     Active Substance: SUFENTANIL
     Indication: PAIN MANAGEMENT
     Dosage: 30 MCG
     Route: 060
     Dates: start: 20210427, end: 20210427
  2. LEVOTHYROXINE. [Concomitant]
     Active Substance: LEVOTHYROXINE
     Dosage: UNKNOWN DOSE
     Dates: start: 20210427
  3. LIDOCAINE_ [Concomitant]
     Dates: start: 20210427

REACTIONS (2)
  - Nausea [Recovered/Resolved]
  - Migraine [Recovered/Resolved]

NARRATIVE: CASE EVENT DATE: 20210427
